FAERS Safety Report 7008660-6 (Version None)
Quarter: 2010Q3

REPORT INFORMATION
  Report Type: 
  Country: None (occurrence: None)
  Receive Date: 20100922
  Receipt Date: 20100914
  Transmission Date: 20110219
  Serious: Yes (Other)
  Sender: FDA-Public Use
  Company Number: US-AMGEN-QUU433963

PATIENT
  Sex: Male

DRUGS (3)
  1. NPLATE [Suspect]
     Indication: IDIOPATHIC THROMBOCYTOPENIC PURPURA
     Dates: start: 20090318, end: 20090506
  2. UNSPECIFIED MEDICATION [Concomitant]
  3. RITUXAN [Concomitant]

REACTIONS (2)
  - DUPUYTREN'S CONTRACTURE OPERATION [None]
  - PAROXYSMAL NOCTURNAL HAEMOGLOBINURIA [None]
